FAERS Safety Report 5220908-7 (Version None)
Quarter: 2007Q1

REPORT INFORMATION
  Report Type: 
  Country: None (occurrence: None)
  Receive Date: 20070125
  Receipt Date: 20070125
  Transmission Date: 20070707
  Serious: Yes (Hospitalization)
  Sender: FDA-Public Use
  Company Number: None

PATIENT
  Sex: Male

DRUGS (3)
  1. COMPAZINE [Suspect]
     Dosage: PO
     Route: 048
     Dates: start: 20060204
  2. PROZAC [Concomitant]
  3. TYLENOL [Concomitant]

REACTIONS (4)
  - DYSPHAGIA [None]
  - DYSTONIA [None]
  - MUSCLE TIGHTNESS [None]
  - TONGUE DISORDER [None]
